FAERS Safety Report 5393062-9 (Version None)
Quarter: 2007Q3

REPORT INFORMATION
  Report Type: 
  Country: None (occurrence: None)
  Receive Date: 20070719
  Receipt Date: 20070705
  Transmission Date: 20080115
  Serious: Yes (Other)
  Sender: FDA-Public Use
  Company Number: 032-111

PATIENT
  Sex: Male

DRUGS (2)
  1. TEVETEN [Suspect]
  2. TEVETEN HCT [Suspect]

REACTIONS (1)
  - CHRONIC SINUSITIS [None]
